FAERS Safety Report 7232661-6 (Version None)
Quarter: 2011Q1

REPORT INFORMATION
  Report Type: 
  Country: None (occurrence: None)
  Receive Date: 20110119
  Receipt Date: 20110113
  Transmission Date: 20110831
  Serious: Yes (Disabling, Other)
  Sender: FDA-Public Use
  Company Number: JP-BAYER-201013706BYL

PATIENT
  Sex: Female
  Weight: 40 kg

DRUGS (7)
  1. ADALAT [Concomitant]
     Dosage: DAILY DOSE 20 MG
     Route: 048
  2. TANATRIL [Concomitant]
     Indication: HYPERTENSION
     Dosage: DAILY DOSE 5 MG
     Route: 048
  3. URSO 250 [Concomitant]
     Indication: CHRONIC HEPATITIS
     Dosage: DAILY DOSE 300 MG
     Route: 048
  4. NEXAVAR [Suspect]
     Indication: HEPATIC NEOPLASM MALIGNANT
     Dosage: 400 MG, QD
     Route: 048
     Dates: start: 20100415, end: 20100616
  5. MAGLAX [Concomitant]
     Indication: CONSTIPATION
     Dosage: DAILY DOSE 990 MG
     Route: 048
  6. ACINON [Concomitant]
     Indication: GASTRITIS
     Dosage: DAILY DOSE 150 MG
     Route: 048
  7. BENET [Concomitant]
     Indication: OSTEOPOROSIS
     Dosage: DAILY DOSE 17.5 MG
     Route: 048

REACTIONS (1)
  - OPTIC NEURITIS [None]
